FAERS Safety Report 7777230-4 (Version None)
Quarter: 2011Q3

REPORT INFORMATION
  Report Type: 
  Country: None (occurrence: None)
  Receive Date: 20110926
  Receipt Date: 20110913
  Transmission Date: 20111222
  Serious: Yes (Other)
  Sender: FDA-Public Use
  Company Number: PHHY2011AR71679

PATIENT
  Sex: Female

DRUGS (1)
  1. ONBREZ [Suspect]
     Dosage: UNK UKN, QD
     Dates: start: 20110603, end: 20110706

REACTIONS (6)
  - BLOOD PRESSURE FLUCTUATION [None]
  - LIVER DISORDER [None]
  - DYSPNOEA [None]
  - ARRHYTHMIA [None]
  - DIZZINESS [None]
  - PERIPHERAL COLDNESS [None]
